FAERS Safety Report 20193340 (Version 3)
Quarter: 2021Q4

REPORT INFORMATION
  Report Type: Spontaneous
  Country: JP (occurrence: JP)
  Receive Date: 20211216
  Receipt Date: 20211229
  Transmission Date: 20220303
  Serious: Yes (Death, Hospitalization, Other)
  Sender: FDA-Public Use
  Company Number: JP-GSKJP-JP2021JPN255299AA

PATIENT
  Age: 8 Decade
  Sex: Male

DRUGS (5)
  1. REQUIP [Suspect]
     Active Substance: ROPINIROLE HYDROCHLORIDE
     Indication: Parkinson^s disease
     Dosage: 16 MG, QD
  2. ISTRADEFYLLINE [Concomitant]
     Active Substance: ISTRADEFYLLINE
     Indication: Parkinson^s disease
     Dosage: 20 MG, QD
     Dates: start: 201803
  3. CARBIDOPA\LEVODOPA [Concomitant]
     Active Substance: CARBIDOPA\LEVODOPA
     Indication: Parkinson^s disease
     Dosage: 600 MG, QD
     Dates: start: 201405
  4. FP (JAPAN) [Concomitant]
     Indication: Parkinson^s disease
     Dosage: UNK
     Dates: start: 201405, end: 201406
  5. COMTAN [Concomitant]
     Active Substance: ENTACAPONE
     Indication: Parkinson^s disease
     Dosage: UNK
     Dates: start: 201510, end: 201511

REACTIONS (12)
  - Death [Fatal]
  - Cerebellar haemorrhage [Unknown]
  - Dysmetria [Unknown]
  - Hypothermia [Unknown]
  - Gait disturbance [Unknown]
  - Fall [Unknown]
  - Condition aggravated [Unknown]
  - Dyslalia [Unknown]
  - Logorrhoea [Unknown]
  - Abnormal behaviour [Unknown]
  - Impulse-control disorder [Unknown]
  - Therapeutic response decreased [Unknown]
